FAERS Safety Report 13848688 (Version 1)
Quarter: 2017Q3

REPORT INFORMATION
  Report Type: Spontaneous
  Country: US (occurrence: US)
  Receive Date: 20170809
  Receipt Date: 20170809
  Transmission Date: 20171127
  Serious: No
  Sender: FDA-Public Use
  Company Number: None

PATIENT
  Sex: Female

DRUGS (2)
  1. OTEZLA [Suspect]
     Active Substance: APREMILAST
     Indication: PSORIASIS
     Route: 048
  2. MYRBETRIQ [Suspect]
     Active Substance: MIRABEGRON

REACTIONS (3)
  - Drug effect decreased [None]
  - Diarrhoea [None]
  - Surgery [None]
